FAERS Safety Report 4673661-X (Version None)
Quarter: 2005Q2

REPORT INFORMATION
  Report Type: 
  Country: None (occurrence: None)
  Receive Date: 20050523
  Receipt Date: 20050506
  Transmission Date: 20051028
  Serious: Yes (Hospitalization)
  Sender: FDA-Public Use
  Company Number: SP00434

PATIENT
  Age: 79 Year
  Sex: Female

DRUGS (2)
  1. COLAZAL [Suspect]
     Indication: COLITIS ULCERATIVE
     Dosage: 750MG/ TID, ORAL
     Route: 048
     Dates: start: 20050101
  2. COUMADIN [Concomitant]

REACTIONS (2)
  - PERICARDITIS [None]
  - PLEURAL EFFUSION [None]
